FAERS Safety Report 8044857-4 (Version None)
Quarter: 2012Q1

REPORT INFORMATION
  Report Type: 
  Country: None (occurrence: None)
  Receive Date: 20120113
  Receipt Date: 20120110
  Transmission Date: 20120608
  Serious: No
  Sender: FDA-Public Use
  Company Number: US-TEVA-317016USA

PATIENT
  Sex: Female
  Weight: 65.83 kg

DRUGS (4)
  1. IRON [Concomitant]
     Indication: IRON DEFICIENCY
  2. PLAN B ONE-STEP [Suspect]
     Indication: POST COITAL CONTRACEPTION
     Dosage: 1.5 MILLIGRAM;
     Route: 048
     Dates: start: 20120110, end: 20120110
  3. LAMICTAL [Concomitant]
     Indication: CONVULSION
  4. FOLIC ACID [Concomitant]
     Indication: CONVULSION

REACTIONS (3)
  - PELVIC PAIN [None]
  - BACK PAIN [None]
  - NAUSEA [None]
